FAERS Safety Report 8506936-4 (Version None)
Quarter: 2012Q3

REPORT INFORMATION
  Report Type: 
  Country: None (occurrence: None)
  Receive Date: 20120712
  Receipt Date: 20120705
  Transmission Date: 20120928
  Serious: Yes (Other)
  Sender: FDA-Public Use
  Company Number: US-JNJFOC-20120702987

PATIENT
  Sex: Male

DRUGS (2)
  1. OXYCODONE HCL [Concomitant]
  2. XARELTO [Suspect]
     Indication: THROMBOSIS PROPHYLAXIS
     Route: 048

REACTIONS (3)
  - HAEMARTHROSIS [None]
  - CONTUSION [None]
  - FALL [None]
